APPROVED DRUG PRODUCT: MEPRON
Active Ingredient: ATOVAQUONE
Strength: 250MG **Federal Register determination that product was not discontinued or withdrawn for safety or effectiveness reasons**
Dosage Form/Route: TABLET;ORAL
Application: N020259 | Product #001
Applicant: GLAXOSMITHKLINE LLC
Approved: Nov 25, 1992 | RLD: Yes | RS: No | Type: DISCN